FAERS Safety Report 11860814 (Version 2)
Quarter: 2016Q1

REPORT INFORMATION
  Report Type: Spontaneous
  Country: US (occurrence: US)
  Receive Date: 20151222
  Receipt Date: 20160104
  Transmission Date: 20160526
  Serious: No
  Sender: FDA-Public Use
  Company Number: US-MISSION PHARMACAL COMPANY-1045795

PATIENT
  Age: 71 Year
  Sex: Female

DRUGS (1)
  1. THIOLA [Suspect]
     Active Substance: TIOPRONIN
     Indication: CYSTINURIA
     Route: 065

REACTIONS (3)
  - Diarrhoea [Recovered/Resolved]
  - Nephrolithiasis [Recovered/Resolved]
  - Joint stiffness [Recovering/Resolving]
